FAERS Safety Report 20817965 (Version 1)
Quarter: 2022Q2

REPORT INFORMATION
  Report Type: Spontaneous
  Country: IT (occurrence: IT)
  Receive Date: 20220512
  Receipt Date: 20220512
  Transmission Date: 20220720
  Serious: Yes (Life-Threatening, Hospitalization)
  Sender: FDA-Public Use
  Company Number: IT-MYLANLABS-2022M1034485

PATIENT
  Age: 50 Year
  Sex: Male

DRUGS (10)
  1. FUROSEMIDE [Suspect]
     Active Substance: FUROSEMIDE
     Indication: Acute kidney injury
     Dosage: 250 MILLIGRAM, BID
     Route: 065
     Dates: start: 20200513
  2. FUROSEMIDE [Suspect]
     Active Substance: FUROSEMIDE
     Indication: Liver injury
  3. SPIRONOLACTONE [Suspect]
     Active Substance: SPIRONOLACTONE
     Indication: Acute kidney injury
     Dosage: 200 MILLIGRAM (DAILY)
     Route: 065
     Dates: start: 20200513
  4. SPIRONOLACTONE [Suspect]
     Active Substance: SPIRONOLACTONE
     Indication: Liver injury
  5. LEVOSIMENDAN [Suspect]
     Active Substance: LEVOSIMENDAN
     Indication: Cardiac failure acute
     Dosage: 0.1 MCG/KG, QMINUTE (INFUSION)
     Dates: start: 20200513
  6. METOLAZONE [Suspect]
     Active Substance: METOLAZONE
     Indication: Acute kidney injury
     Dosage: 5 MILLIGRAM, BID
     Route: 065
     Dates: start: 20200513
  7. METOLAZONE [Suspect]
     Active Substance: METOLAZONE
     Indication: Liver injury
  8. ENOXIMONE [Suspect]
     Active Substance: ENOXIMONE
     Indication: Cardiac failure acute
     Dosage: 5 MCG/KG, QMINUTE (INFUSION)
     Dates: start: 20200515
  9. NOREPINEPHRINE [Suspect]
     Active Substance: NOREPINEPHRINE
     Indication: Cardiac failure acute
     Dosage: 0.2 MCG/KG, QMINUTE INFUSION
     Dates: start: 20200515
  10. WARFARIN [Suspect]
     Active Substance: WARFARIN
     Indication: Anticoagulant therapy
     Dosage: UNK
     Route: 065

REACTIONS (1)
  - Drug ineffective [Unknown]

NARRATIVE: CASE EVENT DATE: 20200101
